FAERS Safety Report 5321432-3 (Version None)
Quarter: 2007Q2

REPORT INFORMATION
  Report Type: 
  Country: None (occurrence: None)
  Receive Date: 20070220
  Receipt Date: 20061102
  Transmission Date: 20071010
  Serious: No
  Sender: FDA-Public Use
  Company Number: TPA2006A01962

PATIENT
  Age: 60 Year
  Sex: Female
  Weight: 74.8435 kg

DRUGS (4)
  1. ROZEREM [Suspect]
     Indication: INSOMNIA
     Dosage: 8 MG, QHS, PER ORAL
     Route: 048
     Dates: start: 20061101
  2. TEMAZEPAM [Concomitant]
  3. EXCEDRIN PM (PARACETAMOL, DIPHENHYDRAMINE CITRATE) [Concomitant]
  4. CATAPLEX B (ALL OTHER THERAPEUTIC PRODUCTS) [Concomitant]

REACTIONS (2)
  - INSOMNIA [None]
  - NERVOUSNESS [None]
